FAERS Safety Report 9567708 (Version 1)
Quarter: 2013Q3

REPORT INFORMATION
  Report Type: Spontaneous
  Country: US (occurrence: US)
  Receive Date: 20130930
  Receipt Date: 20130930
  Transmission Date: 20140515
  Serious: No
  Sender: FDA-Public Use
  Company Number: US-AMGEN-USASP2013003387

PATIENT
  Sex: Female
  Weight: 84.81 kg

DRUGS (3)
  1. ENBREL [Suspect]
     Indication: PSORIASIS
     Dosage: UNK
     Dates: start: 20080101, end: 20121101
  2. MULTIVITAMINS, PLAIN [Concomitant]
     Dosage: UNK
  3. ALLERGY                            /00000402/ [Concomitant]
     Indication: SEASONAL ALLERGY
     Dosage: UNK UNK, PRN

REACTIONS (3)
  - Therapeutic response decreased [Unknown]
  - Cough [Unknown]
  - Psoriasis [Unknown]
